FAERS Safety Report 6990688-3 (Version None)
Quarter: 2010Q3

REPORT INFORMATION
  Report Type: 
  Country: None (occurrence: None)
  Receive Date: 20100916
  Receipt Date: 20100727
  Transmission Date: 20110219
  Serious: Yes (Other)
  Sender: FDA-Public Use
  Company Number: US-PFIZER INC-2009311441

PATIENT
  Sex: Male
  Weight: 109 kg

DRUGS (4)
  1. LYRICA [Suspect]
     Indication: NEUROPATHY PERIPHERAL
     Dosage: 300 MG, 2X/DAY
     Dates: start: 20051201
  2. LYRICA [Suspect]
     Dosage: 300 MG, 3X/DAY
  3. LYRICA [Suspect]
     Dosage: 300 MG, 4X/DAY
  4. CELEXA [Suspect]
     Dosage: 40 MG, 1X/DAY
     Dates: start: 20070101

REACTIONS (2)
  - SUICIDAL IDEATION [None]
  - WITHDRAWAL SYNDROME [None]
